FAERS Safety Report 10649495 (Version 1)
Quarter: 2014Q4

REPORT INFORMATION
  Report Type: Spontaneous
  Country: US (occurrence: None)
  Receive Date: 20141205
  Receipt Date: 20141205
  Transmission Date: 20150529
  Serious: No
  Sender: FDA-Public Use
  Company Number: USA-2014102460

PATIENT
  Age: 73 Year
  Sex: Female
  Weight: 90.72 kg

DRUGS (1)
  1. POMALYST [Suspect]
     Active Substance: POMALIDOMIDE
     Indication: PLASMA CELL MYELOMA
     Route: 048
     Dates: start: 201408

REACTIONS (4)
  - White blood cell count decreased [None]
  - Urticaria [None]
  - Pruritus [None]
  - Scab [None]

NARRATIVE: CASE EVENT DATE: 2014
